FAERS Safety Report 8960157 (Version 2)
Quarter: 2013Q1

REPORT INFORMATION
  Report Type: Report from Study
  Country: FR (occurrence: FR)
  Receive Date: 20121211
  Receipt Date: 20130222
  Transmission Date: 20140127
  Serious: Yes (Death, Other)
  Sender: FDA-Public Use
  Company Number: FR-BAXTER-2012BAX026042

PATIENT
  Age: 73 Year
  Sex: Male
  Weight: 95 kg

DRUGS (12)
  1. ENDOXAN 2000 MG, LYOPHILISAT POUR SOLUTION INJECTABLE [Suspect]
     Indication: B-CELL LYMPHOMA
     Route: 042
     Dates: start: 20050204, end: 20050520
  2. RITUXIMAB [Suspect]
     Indication: B-CELL LYMPHOMA
     Route: 042
     Dates: start: 20050203
  3. RITUXIMAB [Suspect]
     Route: 042
     Dates: start: 20050215
  4. RITUXIMAB [Suspect]
     Route: 042
     Dates: start: 20050222
  5. RITUXIMAB [Suspect]
     Route: 042
  6. RITUXIMAB [Suspect]
     Route: 042
     Dates: start: 20050307
  7. RITUXIMAB [Suspect]
     Route: 042
     Dates: start: 20050505
  8. RITUXIMAB [Suspect]
     Route: 042
     Dates: start: 20050528, end: 20050528
  9. DOXORUBICINE [Suspect]
     Indication: B-CELL LYMPHOMA
     Route: 042
     Dates: start: 20050204, end: 20050520
  10. VINCRISTINE [Suspect]
     Indication: B-CELL LYMPHOMA
     Route: 042
     Dates: start: 20050204, end: 20050520
  11. FLUDARABINE [Suspect]
     Indication: B-CELL LYMPHOMA
     Route: 048
     Dates: start: 20080807, end: 20090105
  12. PREDNISONE [Suspect]
     Indication: B-CELL LYMPHOMA
     Route: 048
     Dates: start: 20050204, end: 20050525

REACTIONS (1)
  - Myelodysplastic syndrome [Fatal]
